FAERS Safety Report 9504407 (Version 1)
Quarter: 2013Q3

REPORT INFORMATION
  Report Type: Spontaneous
  Country: IT (occurrence: IT)
  Receive Date: 20130906
  Receipt Date: 20130906
  Transmission Date: 20140515
  Serious: Yes (Hospitalization)
  Sender: FDA-Public Use
  Company Number: IT-BRISTOL-MYERS SQUIBB COMPANY-19233956

PATIENT
  Age: 83 Year
  Sex: Male

DRUGS (2)
  1. COUMADIN TABS 5 MG [Suspect]
     Dosage: 1DF: 1UNIT
     Route: 048
     Dates: start: 20130401, end: 20130819
  2. TICLOPIDINE [Suspect]
     Dosage: 250 MG TABS
     Route: 048
     Dates: start: 20130717, end: 20130819

REACTIONS (3)
  - Anaemia [Recovered/Resolved]
  - Melaena [Recovered/Resolved]
  - Gastrointestinal angiodysplasia [Recovered/Resolved]
